FAERS Safety Report 12788332 (Version 1)
Quarter: 2016Q3

REPORT INFORMATION
  Report Type: Spontaneous
  Country: BG (occurrence: BG)
  Receive Date: 20160928
  Receipt Date: 20160928
  Transmission Date: 20161109
  Serious: Yes (Life-Threatening)
  Sender: FDA-Public Use
  Company Number: BG-ASTRAZENECA-2016SF01123

PATIENT
  Age: 24868 Day
  Sex: Male

DRUGS (5)
  1. GLYCEROL TRINITRATE [Concomitant]
     Dosage: 3-5 ML/H
     Route: 042
  2. BRILIQUE [Suspect]
     Active Substance: TICAGRELOR
     Indication: ACUTE MYOCARDIAL INFARCTION
     Route: 048
     Dates: start: 20160909
  3. ACETYLSALICYLIC ACID [Concomitant]
     Active Substance: ASPIRIN
     Dosage: 100.0MG ONCE/SINGLE ADMINISTRATION
  4. HEPARIN [Concomitant]
     Active Substance: HEPARIN SODIUM
     Dosage: 5000 E
     Route: 042
  5. ACETYLSALICYLIC ACID [Concomitant]
     Active Substance: ASPIRIN
     Dosage: 250.0MG ONCE/SINGLE ADMINISTRATION

REACTIONS (2)
  - Vascular stent thrombosis [Unknown]
  - Coronary artery dissection [Unknown]

NARRATIVE: CASE EVENT DATE: 20160909
